FAERS Safety Report 10392332 (Version 5)
Quarter: 2015Q1

REPORT INFORMATION
  Report Type: Report from Study
  Country: US (occurrence: US)
  Receive Date: 20140819
  Receipt Date: 20150302
  Transmission Date: 20150720
  Serious: Yes (Hospitalization)
  Sender: FDA-Public Use
  Company Number: US-ROCHE-1443914

PATIENT
  Age: 61 Year
  Sex: Female
  Weight: 87.1 kg

DRUGS (17)
  1. RITUXIMAB [Suspect]
     Active Substance: RITUXIMAB
     Indication: GLOMERULONEPHRITIS MEMBRANOUS
     Dosage: AS PER PROTOCOL:1000 MG, I.V. ON DAYS 1 AND 15 AND WILL BE RETREATED AT MONTH 6 INDEPENDENT OF CD19+
     Route: 042
     Dates: start: 20140529
  2. RITUXIMAB [Suspect]
     Active Substance: RITUXIMAB
     Route: 042
     Dates: start: 20140610
  3. ACETAMINOPHEN/BUTALBITAL [Concomitant]
     Active Substance: ACETAMINOPHEN\BUTALBITAL
  4. ENOXAPARIN [Concomitant]
     Active Substance: ENOXAPARIN
  5. VENLAFAXINE [Concomitant]
     Active Substance: VENLAFAXINE HYDROCHLORIDE
  6. ASPIRIN. [Concomitant]
     Active Substance: ASPIRIN
  7. LASIX [Concomitant]
     Active Substance: FUROSEMIDE
  8. MAXALT [Concomitant]
     Active Substance: RIZATRIPTAN BENZOATE
  9. WARFARIN [Concomitant]
     Active Substance: WARFARIN
  10. ALBUTEROL. [Concomitant]
     Active Substance: ALBUTEROL
  11. BACLOFEN. [Concomitant]
     Active Substance: BACLOFEN
  12. LORAZEPAM. [Concomitant]
     Active Substance: LORAZEPAM
  13. REQUIP [Concomitant]
     Active Substance: ROPINIROLE HYDROCHLORIDE
  14. LOSARTAN [Concomitant]
     Active Substance: LOSARTAN
  15. PRILOSEC [Concomitant]
     Active Substance: OMEPRAZOLE MAGNESIUM
  16. K-DUR [Concomitant]
     Active Substance: POTASSIUM CHLORIDE
  17. TEMAZEPAM. [Concomitant]
     Active Substance: TEMAZEPAM

REACTIONS (1)
  - Colitis [Recovered/Resolved]

NARRATIVE: CASE EVENT DATE: 20140728
